FAERS Safety Report 8167181-8 (Version None)
Quarter: 2012Q1

REPORT INFORMATION
  Report Type: 
  Country: None (occurrence: None)
  Receive Date: 20120227
  Receipt Date: 20120213
  Transmission Date: 20120608
  Serious: Yes (Other)
  Sender: FDA-Public Use
  Company Number: US-ELI_LILLY_AND_COMPANY-US201202004234

PATIENT
  Age: 43 Year
  Sex: Male

DRUGS (3)
  1. CYMBALTA [Suspect]
     Indication: DEPRESSION
     Dosage: 60 MG, UNK
     Dates: start: 20120123
  2. AXIRON [Suspect]
     Indication: HYPOGONADISM
     Dosage: UNK
     Dates: start: 20120123
  3. ALLOPURINOL [Concomitant]
     Dosage: UNK
     Dates: start: 20120123

REACTIONS (2)
  - STEVENS-JOHNSON SYNDROME [None]
  - URTICARIA PAPULAR [None]
